FAERS Safety Report 8081575-0 (Version None)
Quarter: 2012Q1

REPORT INFORMATION
  Report Type: 
  Country: None (occurrence: None)
  Receive Date: 20120130
  Receipt Date: 20120125
  Transmission Date: 20120608
  Serious: Yes (Death, Life-Threatening, Other)
  Sender: FDA-Public Use
  Company Number: JP-ROCHE-770240

PATIENT
  Age: 57 Year
  Sex: Male
  Weight: 53 kg

DRUGS (3)
  1. AVASTIN [Suspect]
     Indication: LUNG ADENOCARCINOMA
     Dosage: FREQUNECY NOT REPORTED.
     Route: 041
     Dates: start: 20101116, end: 20110201
  2. PARAPLATIN [Concomitant]
     Indication: LUNG ADENOCARCINOMA
     Dosage: NOTE: DOSAGE IS UNCERTAIN.
     Route: 041
  3. TAXOL [Concomitant]
     Indication: LUNG ADENOCARCINOMA
     Dosage: NOTE: DOSAGE IS UNCERTAIN.
     Route: 041

REACTIONS (3)
  - INTERSTITIAL LUNG DISEASE [None]
  - PROTEINURIA [None]
  - NON-SMALL CELL LUNG CANCER [None]
